FAERS Safety Report 24689202 (Version 7)
Quarter: 2025Q3

REPORT INFORMATION
  Report Type: Spontaneous
  Country: EU (occurrence: EU)
  Receive Date: 20241203
  Receipt Date: 20250731
  Transmission Date: 20251021
  Serious: Yes (Hospitalization, Other)
  Sender: JAZZ
  Company Number: EU-JAZZ PHARMACEUTICALS-2024-ES-022574

PATIENT
  Age: 17 Year
  Weight: 80 kg

DRUGS (10)
  1. ZEPZELCA [Suspect]
     Active Substance: LURBINECTEDIN
     Indication: Ewing^s sarcoma
  2. ZEPZELCA [Suspect]
     Active Substance: LURBINECTEDIN
  3. ELIQUIS [Concomitant]
     Active Substance: APIXABAN
     Indication: Pulmonary embolism
     Dosage: 2.5 MILLIGRAM, BID
  4. ATROVENT [Concomitant]
     Active Substance: IPRATROPIUM BROMIDE
     Indication: Cough
  5. ZOFRAN [Concomitant]
     Active Substance: ONDANSETRON HYDROCHLORIDE
     Indication: Prophylaxis of nausea and vomiting
     Dosage: 8 GRAM, TID
  6. OMEPRAZOLE [Concomitant]
     Active Substance: OMEPRAZOLE
  7. OMEPRAZOLE [Concomitant]
     Active Substance: OMEPRAZOLE
  8. HYDROCORTISONE [Concomitant]
     Active Substance: HYDROCORTISONE
     Indication: Product used for unknown indication
     Dosage: 10 MILLIGRAM, QD
  9. ONDANSETRON [Concomitant]
     Active Substance: ONDANSETRON
     Indication: Prophylaxis
  10. SULFAMETHOXAZOLE AND TRIMETHOPRIM [Concomitant]
     Active Substance: SULFAMETHOXAZOLE\TRIMETHOPRIM
     Dosage: UNK, QD

REACTIONS (13)
  - Lower respiratory tract infection fungal [Recovered/Resolved]
  - Lower respiratory tract infection bacterial [Recovered/Resolved]
  - Prerenal failure [Recovered/Resolved]
  - Thrombocytopenia [Recovered/Resolved]
  - Neutropenia [Recovered/Resolved]
  - Neutropenia [Recovered/Resolved]
  - Leukopenia [Recovered/Resolved]
  - Leukopenia [Recovered/Resolved]
  - Anaemia [Unknown]
  - Vomiting [Recovered/Resolved]
  - Anaemia [Unknown]
  - Decreased appetite [Recovered/Resolved]
  - Dehydration [Recovered/Resolved]

NARRATIVE: CASE EVENT DATE: 20241010
